FAERS Safety Report 21712213 (Version 1)
Quarter: 2022Q4

REPORT INFORMATION
  Report Type: Report from Study
  Country: US (occurrence: US)
  Receive Date: 20221212
  Receipt Date: 20221212
  Transmission Date: 20230112
  Serious: No
  Sender: FDA-Public Use
  Company Number: US-002147023-NVSC2022US286166

PATIENT
  Age: 61 Year
  Sex: Female

DRUGS (1)
  1. KESIMPTA [Suspect]
     Active Substance: OFATUMUMAB
     Indication: Multiple sclerosis
     Dosage: 20 MG, OTHER (LOADING DOSE - ONCE A WEEK FOR 3 WEEKS)
     Route: 058
     Dates: start: 20221121

REACTIONS (2)
  - Influenza like illness [Recovered/Resolved]
  - Diarrhoea [Recovered/Resolved]

NARRATIVE: CASE EVENT DATE: 20221121
